FAERS Safety Report 8974994 (Version 1)
Quarter: 2012Q4

REPORT INFORMATION
  Report Type: 
  Country: VE (occurrence: VE)
  Receive Date: 20121219
  Receipt Date: 20121219
  Transmission Date: 20130627
  Serious: Yes (Other)
  Sender: FDA-Public Use
  Company Number: PHHY2012VE117310

PATIENT
  Sex: Female

DRUGS (3)
  1. ACLASTA [Suspect]
     Indication: OSTEOPOROSIS
     Dosage: 5 mg, annual
     Route: 042
     Dates: start: 20120918
  2. CALCIUM [Concomitant]
     Indication: OSTEOPOROSIS
     Dosage: 300 mg, once daily
     Route: 048
  3. GLUCOSAMINE [Concomitant]
     Indication: OSTEOPOROSIS
     Dosage: 400 mg, BID
     Route: 048

REACTIONS (1)
  - Bone fissure [Recovering/Resolving]
